FAERS Safety Report 10977773 (Version 3)
Quarter: 2015Q3

REPORT INFORMATION
  Report Type: Spontaneous
  Country: US (occurrence: US)
  Receive Date: 20150402
  Receipt Date: 20150706
  Transmission Date: 20151125
  Serious: Yes (Death, Life-Threatening, Hospitalization, Other)
  Sender: FDA-Public Use
  Company Number: US-GLAXOSMITHKLINE-US2015042126

PATIENT
  Age: 94 Year
  Sex: Female

DRUGS (3)
  1. LORAZEPAM. [Concomitant]
     Active Substance: LORAZEPAM
  2. BENICAR [Concomitant]
     Active Substance: OLMESARTAN MEDOXOMIL
  3. BREO ELLIPTA [Suspect]
     Active Substance: FLUTICASONE FUROATE\VILANTEROL TRIFENATATE
     Indication: CHRONIC OBSTRUCTIVE PULMONARY DISEASE
     Dosage: 1 PUFF(S), UNK
     Route: 055
     Dates: start: 201503, end: 201503

REACTIONS (9)
  - Wheezing [Fatal]
  - Exposure via inhalation [Fatal]
  - Terminal state [Fatal]
  - Device use error [Fatal]
  - Medication error [Fatal]
  - Drug dose omission [Unknown]
  - Product contamination chemical [Fatal]
  - Pneumonia [Fatal]
  - Respiratory distress [Fatal]

NARRATIVE: CASE EVENT DATE: 201503
